FAERS Safety Report 8094149-2 (Version None)
Quarter: 2012Q1

REPORT INFORMATION
  Report Type: 
  Country: None (occurrence: None)
  Receive Date: 20120130
  Receipt Date: 20120130
  Transmission Date: 20120608
  Serious: Yes (Hospitalization)
  Sender: FDA-Public Use
  Company Number: None

PATIENT
  Age: 71 Year
  Sex: Female
  Weight: 58.967 kg

DRUGS (15)
  1. ALBUTEROL [Concomitant]
     Route: 048
  2. CATAPRES [Concomitant]
     Route: 062
  3. FLONASE [Concomitant]
     Route: 045
  4. XOLAIR [Suspect]
     Indication: HYPERSENSITIVITY
     Dosage: 300 MG
     Route: 058
  5. FISH OIL [Concomitant]
     Route: 048
  6. CELEXA [Concomitant]
     Route: 048
  7. METFORMIN HCL [Concomitant]
     Route: 048
  8. GLYBURIDE [Concomitant]
     Route: 048
  9. SINGULAIR [Concomitant]
     Route: 048
  10. XOLAIR [Concomitant]
     Route: 058
  11. SYMBICORT [Concomitant]
     Route: 050
  12. ALLEGRA [Concomitant]
     Route: 048
  13. LYRICA [Concomitant]
     Route: 048
  14. LOSARTAN POTASSIUM [Concomitant]
     Route: 048
  15. VITAMIN D [Concomitant]
     Route: 048

REACTIONS (4)
  - SWELLING [None]
  - MUSCULOSKELETAL STIFFNESS [None]
  - INJECTION SITE PAIN [None]
  - INJECTION SITE DISCOMFORT [None]
